FAERS Safety Report 4534088-4 (Version None)
Quarter: 2004Q4

REPORT INFORMATION
  Report Type: 
  Country: None (occurrence: None)
  Receive Date: 20041221
  Receipt Date: 20041221
  Transmission Date: 20050328
  Serious: Yes (Other)
  Sender: FDA-Public Use
  Company Number: None

PATIENT
  Age: 73 Year
  Sex: Male
  Weight: 92.1 kg

DRUGS (5)
  1. ACCUPRIL [Suspect]
  2. HCTZ 25/TRIAMTERENE 37.5MG [Concomitant]
  3. LORATADINE [Concomitant]
  4. TERAZOSIN HCL [Concomitant]
  5. FELODIPINE [Concomitant]

REACTIONS (1)
  - URTICARIA [None]
